FAERS Safety Report 4295193-3 (Version None)
Quarter: 2004Q1

REPORT INFORMATION
  Report Type: 
  Country: None (occurrence: None)
  Receive Date: 20040211
  Receipt Date: 20021031
  Transmission Date: 20041129
  Serious: Yes (Hospitalization)
  Sender: FDA-Public Use
  Company Number: F02200200066

PATIENT
  Age: 71 Year
  Sex: Male

DRUGS (5)
  1. XATRAL           - (ALFUZOSIN) [Suspect]
     Indication: BENIGN PROSTATIC HYPERPLASIA
     Dosage: 10 MG OD, ORAL
     Route: 048
     Dates: start: 20010413
  2. ALLOPURINOL [Concomitant]
  3. BEDELIX (MONTMORILLONITE) [Concomitant]
  4. DEBRIDAT (TRIMEBUTINE MALEATE) [Concomitant]
  5. SPASFON (PHLOROGLUCINOL+TRIMETHYLPHLOROGLUCINOL) [Concomitant]

REACTIONS (3)
  - CALCULUS BLADDER [None]
  - RENAL COLIC [None]
  - ULTRASOUND KIDNEY ABNORMAL [None]
